FAERS Safety Report 6092817-5 (Version None)
Quarter: 2009Q1

REPORT INFORMATION
  Report Type: 
  Country: None (occurrence: None)
  Receive Date: 20090225
  Receipt Date: 20090216
  Transmission Date: 20090719
  Serious: Yes (Other)
  Sender: FDA-Public Use
  Company Number: DE-ELI_LILLY_AND_COMPANY-DE200811000396

PATIENT
  Sex: Male

DRUGS (8)
  1. ZYPREXA [Suspect]
     Indication: MENTAL DISABILITY
     Dosage: 5 MG, DAILY (1/D)
     Route: 048
     Dates: start: 20080501, end: 20081019
  2. ZYPREXA [Suspect]
     Dosage: 2.5 MG, DAILY (1/D)
     Dates: start: 20081020, end: 20081029
  3. MELNEURIN [Concomitant]
     Dosage: 50 MG, 3/D
     Dates: start: 20080501
  4. MELNEURIN [Concomitant]
     Dosage: 100 MG, DAILY (1/D)
     Dates: end: 20081029
  5. PROPOFOL [Concomitant]
     Indication: RHINOPLASTY
     Dates: start: 20080701, end: 20080701
  6. ULTIVA [Concomitant]
     Indication: RHINOPLASTY
     Dates: start: 20080701, end: 20080701
  7. NOVALGIN [Concomitant]
     Dates: start: 20080701, end: 20080701
  8. PENICILLIN V [Concomitant]
     Dates: start: 20080701, end: 20080701

REACTIONS (4)
  - ANTIBODY TEST POSITIVE [None]
  - FATIGUE [None]
  - HEPATOTOXICITY [None]
  - SPLENOMEGALY [None]
